FAERS Safety Report 4510095-2 (Version None)
Quarter: 2004Q4

REPORT INFORMATION
  Report Type: 
  Country: None (occurrence: None)
  Receive Date: 20041119
  Receipt Date: 20041114
  Transmission Date: 20050328
  Serious: No
  Sender: FDA-Public Use
  Company Number: 04H-114-0280337-00

PATIENT
  Sex: 0

DRUGS (1)
  1. DEXTRAN 40 10% IN DEXTROSE 5% [Suspect]

REACTIONS (1)
  - ANAPHYLACTIC REACTION [None]
